FAERS Safety Report 9320543 (Version 3)
Quarter: 2013Q3

REPORT INFORMATION
  Report Type: Report from Study
  Country: GB (occurrence: GB)
  Receive Date: 20130531
  Receipt Date: 20130824
  Transmission Date: 20140515
  Serious: Yes (Death)
  Sender: FDA-Public Use
  Company Number: GB-ROCHE-1230626

PATIENT
  Sex: Female
  Weight: 95 kg

DRUGS (2)
  1. RITUXIMAB [Suspect]
     Indication: RHEUMATOID ARTHRITIS
     Route: 065
     Dates: start: 201212
  2. METHOTREXATE [Concomitant]

REACTIONS (3)
  - Cerebrovascular accident [Fatal]
  - Cerebral infarction [Fatal]
  - Carotid endarterectomy [Fatal]
